FAERS Safety Report 8533592 (Version 3)
Quarter: 2013Q1

REPORT INFORMATION
  Report Type: Report from Study
  Country: CA (occurrence: CA)
  Receive Date: 20120427
  Receipt Date: 20130103
  Transmission Date: 20140127
  Serious: Yes (Other)
  Sender: FDA-Public Use
  Company Number: CA-BRISTOL-MYERS SQUIBB COMPANY-16542144

PATIENT
  Age: 73 Year
  Sex: Female
  Weight: 52 kg

DRUGS (6)
  1. ORENCIA [Suspect]
     Indication: RHEUMATOID ARTHRITIS
     Dosage: NO OF INF: 19,LAST INFUSION 18APR12,10JUL2012?STRT DT:27NV12 ORAL?2H62038,EXP DT:APR15
     Route: 042
     Dates: start: 20110127
  2. PREDNISONE [Concomitant]
  3. HYDROMORPHONE [Concomitant]
  4. ZOPICLONE [Concomitant]
  5. ACTONEL [Concomitant]
  6. NEXIUM [Concomitant]

REACTIONS (7)
  - Atrial fibrillation [Unknown]
  - Oedema peripheral [Unknown]
  - Nausea [Not Recovered/Not Resolved]
  - Epigastric discomfort [Unknown]
  - Laceration [Unknown]
  - Gastroenteritis viral [Recovered/Resolved]
  - Vomiting [Recovered/Resolved]
